FAERS Safety Report 7243598-0 (Version None)
Quarter: 2011Q1

REPORT INFORMATION
  Report Type: 
  Country: None (occurrence: None)
  Receive Date: 20110125
  Receipt Date: 20110114
  Transmission Date: 20110831
  Serious: Yes (Hospitalization, Other)
  Sender: FDA-Public Use
  Company Number: PHHO2010GB15967

PATIENT
  Sex: Female

DRUGS (9)
  1. CYTARABINE [Suspect]
  2. ITRACONAZOLE [Concomitant]
  3. DAUNORUBICIN HCL [Suspect]
     Dosage: UNK
  4. ACYCLOVIR [Concomitant]
  5. AFINITOR [Suspect]
     Indication: ACUTE MYELOID LEUKAEMIA
     Dosage: UNK
     Route: 048
     Dates: start: 20100927, end: 20101009
  6. NORETHISTERONE [Concomitant]
  7. ZOPICLONE [Concomitant]
  8. CODEINE [Concomitant]
  9. SANDO K [Concomitant]

REACTIONS (3)
  - HYPOKALAEMIA [None]
  - BLOOD CREATINE PHOSPHOKINASE INCREASED [None]
  - NEUTROPENIA [None]
